FAERS Safety Report 8608724 (Version 2)
Quarter: 2013Q2

REPORT INFORMATION
  Report Type: Report from Study
  Country: MX (occurrence: MX)
  Receive Date: 20120611
  Receipt Date: 20130524
  Transmission Date: 20140414
  Serious: Yes (Death, Other)
  Sender: FDA-Public Use
  Company Number: PHHY2011MX00923

PATIENT
  Age: 72 Year
  Sex: Female

DRUGS (6)
  1. ONBREZ [Suspect]
     Indication: CHRONIC OBSTRUCTIVE PULMONARY DISEASE
     Dosage: 150 UG, QD
     Dates: start: 20101217
  2. MIFLONIDE [Concomitant]
     Indication: CHRONIC OBSTRUCTIVE PULMONARY DISEASE
     Dosage: 2 DF, QD
  3. SPIRIVA [Concomitant]
     Indication: CHRONIC OBSTRUCTIVE PULMONARY DISEASE
     Dosage: 1 DF, QD
  4. TYLEX [Concomitant]
     Indication: PNEUMONIA
     Dosage: 1 DF, UNK
  5. COMBIVENT [Concomitant]
     Indication: PNEUMONIA
     Dosage: 0.5 DF, QD
  6. METFORMIN [Concomitant]
     Indication: DIABETES MELLITUS
     Dosage: 2 DF, UNK
     Dates: start: 201205

REACTIONS (3)
  - Disease progression [Fatal]
  - Cough [Fatal]
  - Respiratory failure [Not Recovered/Not Resolved]
